FAERS Safety Report 8592335-6 (Version None)
Quarter: 2012Q3

REPORT INFORMATION
  Report Type: 
  Country: None (occurrence: None)
  Receive Date: 20120814
  Receipt Date: 20120806
  Transmission Date: 20120928
  Serious: Yes (Life-Threatening)
  Sender: FDA-Public Use
  Company Number: BE-JNJFOC-JABEL37557

PATIENT
  Sex: Female
  Weight: 70 kg

DRUGS (45)
  1. ITRACONAZOLE [Suspect]
     Route: 041
     Dates: start: 19980116, end: 19980117
  2. ZOLPIDEM TATRATE [Concomitant]
     Route: 065
     Dates: start: 19980117, end: 19980119
  3. AZACTAM [Concomitant]
     Indication: PNEUMONIA
     Route: 041
     Dates: start: 19980119, end: 19980119
  4. ENALAPRIL MALEATE [Concomitant]
     Indication: HYPERTENSION
     Route: 065
  5. ZANTAC [Concomitant]
     Indication: PROPHYLAXIS
     Route: 041
     Dates: end: 19980120
  6. PIPCIL [Concomitant]
     Indication: PNEUMONIA
     Route: 041
     Dates: start: 19980122, end: 19980128
  7. MAGNESIUM SULFATE [Concomitant]
     Route: 041
     Dates: start: 19980116, end: 19980116
  8. PARENTERAL [Concomitant]
     Route: 048
     Dates: start: 19980120, end: 19980123
  9. LASIX [Concomitant]
     Indication: HYPERTENSION
     Route: 041
     Dates: start: 19980119, end: 19980121
  10. LEUCOMAX [Concomitant]
     Indication: APLASTIC ANAEMIA
     Route: 058
     Dates: start: 19980120, end: 19980125
  11. TENORMIN [Concomitant]
     Indication: HYPERTENSION
     Route: 065
     Dates: end: 19980204
  12. PARENTERAL [Concomitant]
     Indication: DIARRHOEA
     Route: 048
     Dates: start: 19980125
  13. NEORAL [Concomitant]
     Indication: APLASTIC ANAEMIA
     Route: 065
     Dates: start: 19980121
  14. FOLIC ACID [Concomitant]
     Route: 041
     Dates: start: 19980123
  15. VINTENE [Concomitant]
     Route: 041
     Dates: end: 19980131
  16. ACTRAPID [Concomitant]
     Indication: HYPERGLYCAEMIA
     Route: 041
     Dates: end: 19980202
  17. PIPCIL [Concomitant]
     Route: 041
     Dates: start: 19980121, end: 19980122
  18. MAGNESIUM SULFATE [Concomitant]
     Route: 041
     Dates: start: 19980125, end: 19980125
  19. PARENTERAL [Concomitant]
     Route: 048
     Dates: start: 19980119, end: 19980119
  20. POTASSIUM CHLORIDE [Concomitant]
     Route: 041
     Dates: start: 19980124, end: 19980131
  21. ITRACONAZOLE [Suspect]
     Indication: PROPHYLAXIS
     Route: 041
     Dates: start: 19980118, end: 19980122
  22. IMODIUM [Concomitant]
     Route: 065
     Dates: start: 19980119, end: 19980121
  23. GLUCOSE [Concomitant]
     Route: 065
  24. DIHYDRALAZINE SULFATE [Concomitant]
     Indication: HYPERTENSION
     Route: 041
     Dates: start: 19980117, end: 19980117
  25. ERYTHROMYCIN [Concomitant]
     Indication: HYPOTHYROIDISM
     Route: 065
  26. TENORMIN [Concomitant]
     Indication: SUPRAVENTRICULAR TACHYCARDIA
     Route: 065
     Dates: end: 19980204
  27. DUOVENT [Concomitant]
     Indication: BRONCHOSPASM
     Dosage: 4-6 PUFFS
     Route: 065
  28. NEUPOGEN [Concomitant]
     Indication: NEUTROPENIA
     Route: 058
     Dates: end: 19980118
  29. OTHER NUTRIENTS [Concomitant]
     Route: 041
     Dates: end: 19980120
  30. OLIGON [Concomitant]
     Route: 041
     Dates: start: 19980116
  31. IMODIUM [Concomitant]
     Indication: DIARRHOEA
     Route: 065
     Dates: start: 19980125, end: 19980125
  32. CERNEVIT-12 [Concomitant]
     Route: 041
  33. MAGNESIUM SULFATE [Concomitant]
     Route: 041
     Dates: start: 19980129, end: 19980129
  34. ZOLPIDEM TATRATE [Concomitant]
     Indication: SLEEP DISORDER
     Route: 048
     Dates: start: 19980126, end: 19980126
  35. TAGAMET [Concomitant]
     Indication: PROPHYLAXIS
     Route: 041
     Dates: start: 19980120
  36. MEDIALIPIDE [Concomitant]
     Route: 041
     Dates: end: 19980131
  37. NEUROBION [Concomitant]
     Route: 041
  38. SOLU-CORTEF [Concomitant]
     Indication: ADRENAL INSUFFICIENCY
     Route: 041
     Dates: end: 19980129
  39. PRIMPERAN TAB [Concomitant]
     Indication: PROPHYLAXIS
     Route: 041
     Dates: start: 19980116, end: 19980119
  40. CORVATON [Concomitant]
     Indication: HYPERTENSION
     Route: 065
     Dates: end: 19980203
  41. AMLODIPINE BESYLATE [Concomitant]
     Indication: HYPERTENSION
     Route: 065
     Dates: end: 19980120
  42. AZACTAM [Concomitant]
     Route: 041
     Dates: start: 19980120, end: 19980120
  43. POTASSIUM CHLORIDE [Concomitant]
     Route: 041
     Dates: start: 19980120, end: 19980122
  44. TARGOCID [Concomitant]
     Indication: PNEUMONIA
     Route: 041
     Dates: end: 19980127
  45. BACTRIM [Concomitant]
     Indication: PROPHYLAXIS
     Route: 065
     Dates: end: 19980120

REACTIONS (3)
  - TORSADE DE POINTES [None]
  - HYPOMAGNESAEMIA [None]
  - VENTRICULAR FIBRILLATION [None]
